FAERS Safety Report 24800845 (Version 1)
Quarter: 2025Q1

REPORT INFORMATION
  Report Type: Spontaneous
  Country: US (occurrence: None)
  Receive Date: 20250102
  Receipt Date: 20250102
  Transmission Date: 20250409
  Serious: Yes (Death)
  Sender: FDA-CTU
  Company Number: None

PATIENT
  Sex: Male

DRUGS (4)
  1. JAYPIRCA [Suspect]
     Active Substance: PIRTOBRUTINIB
     Indication: Carcinoid tumour
     Dosage: FREQUENCY : DAILY;?
     Route: 048
     Dates: start: 20241122
  2. ACYCLOVIR [Concomitant]
     Active Substance: ACYCLOVIR
  3. ALLOPURINOL [Concomitant]
     Active Substance: ALLOPURINOL
  4. NEOSPORIN OIN [Concomitant]

REACTIONS (1)
  - Death [None]
